FAERS Safety Report 10661816 (Version 1)
Quarter: 2014Q4

REPORT INFORMATION
  Report Type: Spontaneous
  Country: US (occurrence: None)
  Receive Date: 20141217
  Receipt Date: 20141217
  Transmission Date: 20150529
  Serious: Yes (Hospitalization)
  Sender: FDA-Public Use
  Company Number: None

PATIENT
  Age: 81 Year
  Sex: Male

DRUGS (10)
  1. LISINOPRIL. [Concomitant]
     Active Substance: LISINOPRIL
  2. DOCUSATE [Concomitant]
     Active Substance: DOCUSATE
  3. LIDOCAINE. [Concomitant]
     Active Substance: LIDOCAINE
  4. METOPROLOL SUCCINATE. [Concomitant]
     Active Substance: METOPROLOL SUCCINATE
  5. FUROSEMIDE. [Concomitant]
     Active Substance: FUROSEMIDE
  6. MEXILETINE [Suspect]
     Active Substance: MEXILETINE
     Indication: ATRIAL FIBRILLATION
     Route: 048
  7. MAGENSIUM OXIDE [Concomitant]
  8. SPIRONOLACTONE. [Concomitant]
     Active Substance: SPIRONOLACTONE
  9. AMIODARONE [Concomitant]
     Active Substance: AMIODARONE
  10. LEVOTHYROXINE [Concomitant]
     Active Substance: LEVOTHYROXINE

REACTIONS (1)
  - Thrombocytopenia [None]

NARRATIVE: CASE EVENT DATE: 20140911
